FAERS Safety Report 25735843 (Version 1)
Quarter: 2025Q3

REPORT INFORMATION
  Report Type: Spontaneous
  Country: US (occurrence: US)
  Receive Date: 20250828
  Receipt Date: 20250828
  Transmission Date: 20251020
  Serious: Yes (Other)
  Sender: PROACTIV
  Company Number: US-The Proactiv LLC-2183388

PATIENT
  Age: 59 Year
  Sex: Female

DRUGS (5)
  1. PROACTIV CLEAN MINERAL ACNE CLEANSER [Suspect]
     Active Substance: SULFUR
     Dates: start: 20250612, end: 20250817
  2. AZELAIC ACID [Suspect]
     Active Substance: AZELAIC ACID
     Dates: start: 20250612, end: 20250817
  3. Proactiv Pore Cleansing Brush [Concomitant]
     Dates: start: 20250612, end: 20250817
  4. COSMETICS [Suspect]
     Active Substance: COSMETICS
     Dates: start: 20250612, end: 20250817
  5. PROACTIV CLEAN ACNE CLEARING HYDRATOR [Suspect]
     Active Substance: SALICYLIC ACID
     Dates: start: 20250612, end: 20250817

REACTIONS (1)
  - Breast cancer stage II [Unknown]

NARRATIVE: CASE EVENT DATE: 20250818
